FAERS Safety Report 4993413-0 (Version None)
Quarter: 2006Q2

REPORT INFORMATION
  Report Type: 
  Country: None (occurrence: None)
  Receive Date: 20060504
  Receipt Date: 20060504
  Transmission Date: 20061013
  Serious: Yes (Hospitalization)
  Sender: FDA-Public Use
  Company Number: None

PATIENT
  Sex: Female
  Weight: 95.9 kg

DRUGS (1)
  1. VANCOMYCIN [Suspect]
     Indication: SUBACUTE ENDOCARDITIS
     Dosage: 1GM IV Q 12 HRS
     Route: 042
     Dates: start: 20051208, end: 20060112

REACTIONS (6)
  - BODY TEMPERATURE INCREASED [None]
  - DRUG HYPERSENSITIVITY [None]
  - MALNUTRITION [None]
  - NEPHRITIS INTERSTITIAL [None]
  - NIGHT SWEATS [None]
  - SKIN TURGOR DECREASED [None]
